FAERS Safety Report 12876936 (Version 2)
Quarter: 2016Q4

REPORT INFORMATION
  Report Type: Spontaneous
  Country: US (occurrence: US)
  Receive Date: 20161024
  Receipt Date: 20161123
  Transmission Date: 20170207
  Serious: No
  Sender: FDA-Public Use
  Company Number: US-GLAXOSMITHKLINE-US2016155072

PATIENT
  Age: 74 Year
  Sex: Male

DRUGS (2)
  1. PROAIR HFA [Concomitant]
     Active Substance: ALBUTEROL SULFATE
  2. BREO ELLIPTA [Suspect]
     Active Substance: FLUTICASONE FUROATE\VILANTEROL TRIFENATATE
     Indication: TOBACCO USER
     Dosage: 1 PUFF(S), QD
     Route: 055
     Dates: start: 201508

REACTIONS (4)
  - Wheezing [Not Recovered/Not Resolved]
  - Drug dose omission [Not Recovered/Not Resolved]
  - Product quality issue [Unknown]
  - Fall [Unknown]

NARRATIVE: CASE EVENT DATE: 20161019
